FAERS Safety Report 22586884 (Version 1)
Quarter: 2023Q2

REPORT INFORMATION
  Report Type: Spontaneous
  Country: DK (occurrence: None)
  Receive Date: 20230611
  Receipt Date: 20230611
  Transmission Date: 20230721
  Serious: Yes (Other)
  Sender: FDA-Public Use
  Company Number: 2023A129119

PATIENT
  Age: 86 Year
  Sex: Male

DRUGS (2)
  1. TICAGRELOR [Suspect]
     Active Substance: TICAGRELOR
     Indication: Percutaneous coronary intervention
     Dosage: STRENGTH: 90 MG
     Dates: start: 20210702
  2. ESBRIET [Concomitant]
     Active Substance: PIRFENIDONE
     Indication: Idiopathic pulmonary fibrosis
     Dates: start: 20211207

REACTIONS (6)
  - Skin exfoliation [Unknown]
  - Photosensitivity reaction [Recovered/Resolved]
  - Peripheral swelling [Unknown]
  - Haemorrhage [Unknown]
  - Ear swelling [Unknown]
  - Swelling face [Unknown]

NARRATIVE: CASE EVENT DATE: 20220101
